FAERS Safety Report 22810262 (Version 3)
Quarter: 2023Q4

REPORT INFORMATION
  Report Type: Spontaneous
  Country: US (occurrence: US)
  Receive Date: 20230810
  Receipt Date: 20231115
  Transmission Date: 20240109
  Serious: No
  Sender: FDA-Public Use
  Company Number: US-PFIZER INC-PV202300137214

PATIENT
  Age: 73 Year
  Sex: Female

DRUGS (2)
  1. IBRANCE [Suspect]
     Active Substance: PALBOCICLIB
     Indication: Neoplasm malignant
     Dosage: 125 MG, CYCLIC (THREE WEEKS ON AND ONE WEEK OFF)
  2. IBRANCE [Suspect]
     Active Substance: PALBOCICLIB
     Dosage: 100 MG, CYCLIC (THREE WEEKS ON AND ONE WEEK OFF)
     Dates: start: 202304

REACTIONS (27)
  - Malaise [Unknown]
  - Diarrhoea [Unknown]
  - Menopausal symptoms [Unknown]
  - Alopecia [Not Recovered/Not Resolved]
  - Malabsorption [Unknown]
  - Fatigue [Unknown]
  - Anxiety [Unknown]
  - Insomnia [Unknown]
  - Dehydration [Unknown]
  - Dry eye [Unknown]
  - Peripheral swelling [Not Recovered/Not Resolved]
  - Arthralgia [Unknown]
  - Myalgia [Unknown]
  - Depression [Unknown]
  - Apathy [Unknown]
  - Headache [Unknown]
  - Urinary incontinence [Unknown]
  - Anal incontinence [Unknown]
  - Vulvovaginal rash [Not Recovered/Not Resolved]
  - Thirst [Unknown]
  - Lacrimation increased [Unknown]
  - Hirsutism [Unknown]
  - Temperature intolerance [Unknown]
  - Blood iron decreased [Unknown]
  - Dry mouth [Unknown]
  - Gastrointestinal sounds abnormal [Unknown]
  - Flatulence [Unknown]

NARRATIVE: CASE EVENT DATE: 20230401
